FAERS Safety Report 12260593 (Version 1)
Quarter: 2016Q2

REPORT INFORMATION
  Report Type: Spontaneous
  Country: US (occurrence: US)
  Receive Date: 20160412
  Receipt Date: 20160412
  Transmission Date: 20160815
  Serious: No
  Sender: FDA-Public Use
  Company Number: US-SA-2016SA026992

PATIENT
  Age: 39 Year
  Sex: Female

DRUGS (2)
  1. MUCINEX [Concomitant]
     Active Substance: GUAIFENESIN
     Route: 065
  2. ALLEGRA ALLERGY [Suspect]
     Active Substance: FEXOFENADINE HYDROCHLORIDE
     Indication: MUCOUS MEMBRANE DISORDER
     Dosage: IS NOT TAKING THE PRODUCT EVERY DAY
     Route: 048

REACTIONS (1)
  - Hypertension [Unknown]
